FAERS Safety Report 22040034 (Version 1)
Quarter: 2023Q1

REPORT INFORMATION
  Report Type: Spontaneous
  Country: US (occurrence: US)
  Receive Date: 20230227
  Receipt Date: 20230227
  Transmission Date: 20230417
  Serious: Yes (Other)
  Sender: FDA-Public Use
  Company Number: US-BAYER-2023A018834

PATIENT
  Sex: Female

DRUGS (1)
  1. REGORAFENIB [Suspect]
     Active Substance: REGORAFENIB
     Dosage: 160 MG, QD 21 DAYS ON, 7 DAYS OFF.

REACTIONS (4)
  - Hypertension [None]
  - Skin toxicity [None]
  - Nephropathy toxic [None]
  - Hepatotoxicity [None]
